FAERS Safety Report 8542155-3 (Version None)
Quarter: 2012Q3

REPORT INFORMATION
  Report Type: 
  Country: None (occurrence: None)
  Receive Date: 20120726
  Receipt Date: 20120723
  Transmission Date: 20120928
  Serious: Yes (Hospitalization, Other)
  Sender: FDA-Public Use
  Company Number: DE-AMGEN-DEUSP2012044466

PATIENT
  Age: 67 Year
  Sex: Female
  Weight: 60 kg

DRUGS (3)
  1. KEPPRA [Concomitant]
     Dosage: 100 MG, UNK
     Route: 048
     Dates: start: 20120701
  2. PROLIA [Suspect]
     Indication: OSTEOPOROSIS POSTMENOPAUSAL
     Dosage: 60 MG, UNK
     Route: 058
     Dates: start: 20120712, end: 20120712
  3. ZEBINIX [Concomitant]
     Dosage: UNK
     Route: 048
     Dates: start: 20120701

REACTIONS (8)
  - DYSPNOEA [None]
  - ANGIOEDEMA [None]
  - CARDIOVASCULAR INSUFFICIENCY [None]
  - ANAPHYLACTIC SHOCK [None]
  - ANXIETY [None]
  - RESTLESSNESS [None]
  - ERYTHEMA [None]
  - VERTIGO [None]
